FAERS Safety Report 13776898 (Version 11)
Quarter: 2018Q4

REPORT INFORMATION
  Report Type: Report from Study
  Country: US (occurrence: US)
  Receive Date: 20170721
  Receipt Date: 20181016
  Transmission Date: 20190204
  Serious: Yes (Other)
  Sender: FDA-Public Use
  Company Number: US-SA-2017SA014139

PATIENT
  Age: 36 Year
  Sex: Male

DRUGS (4)
  1. ALEMTUZUMAB [Suspect]
     Active Substance: ALEMTUZUMAB
     Indication: MULTIPLE SCLEROSIS
     Dosage: 12 MG, QD
     Route: 041
     Dates: start: 20150413, end: 20150417
  2. CHANTIX [Concomitant]
     Active Substance: VARENICLINE TARTRATE
     Indication: TOBACCO USER
     Dosage: UNK UNK, QD
  3. ALEMTUZUMAB [Suspect]
     Active Substance: ALEMTUZUMAB
     Dosage: 12 UNK
     Route: 041
     Dates: start: 20160602, end: 20160603
  4. ALEMTUZUMAB [Suspect]
     Active Substance: ALEMTUZUMAB
     Dosage: 12 UNK
     Route: 041
     Dates: start: 20160606, end: 20160606

REACTIONS (35)
  - Narcolepsy [Not Recovered/Not Resolved]
  - Arthritis [Recovered/Resolved]
  - Stress [Not Recovered/Not Resolved]
  - Viral test positive [Not Recovered/Not Resolved]
  - Restless legs syndrome [Not Recovered/Not Resolved]
  - Emotional distress [Not Recovered/Not Resolved]
  - Arthropod sting [Recovered/Resolved]
  - Influenza [Recovered/Resolved]
  - Insomnia [Not Recovered/Not Resolved]
  - Anxiety [Recovering/Resolving]
  - Pain in extremity [Not Recovered/Not Resolved]
  - Crying [Not Recovered/Not Resolved]
  - Unevaluable event [Recovered/Resolved]
  - Asthenia [Unknown]
  - Fatigue [Unknown]
  - Infection [Unknown]
  - Rheumatic fever [Unknown]
  - Suicidal ideation [Unknown]
  - Peripheral swelling [Not Recovered/Not Resolved]
  - Synovitis [Not Recovered/Not Resolved]
  - Alcohol abuse [Not Recovered/Not Resolved]
  - Asocial behaviour [Unknown]
  - Malaise [Unknown]
  - Arthralgia [Unknown]
  - Hyperventilation [Recovered/Resolved]
  - Depression [Recovering/Resolving]
  - Weight increased [Recovered/Resolved]
  - Depressed mood [Unknown]
  - Rheumatoid arthritis [Not Recovered/Not Resolved]
  - Movement disorder [Not Recovered/Not Resolved]
  - Pain [Not Recovered/Not Resolved]
  - Herpes zoster [Unknown]
  - Pharyngitis streptococcal [Unknown]
  - Blood thyroid stimulating hormone increased [Not Recovered/Not Resolved]
  - Weight decreased [Not Recovered/Not Resolved]

NARRATIVE: CASE EVENT DATE: 2015
